FAERS Safety Report 6119166-0 (Version None)
Quarter: 2009Q1

REPORT INFORMATION
  Report Type: 
  Country: None (occurrence: None)
  Receive Date: 20090316
  Receipt Date: 20090304
  Transmission Date: 20090719
  Serious: Yes (Death, Hospitalization)
  Sender: FDA-Public Use
  Company Number: US-ROCHE-610592

PATIENT
  Sex: Male
  Weight: 60.7 kg

DRUGS (7)
  1. CAPECITABINE [Suspect]
     Indication: COLON CANCER
     Dosage: TAKEN 2000 MG AM AND 1500 MG PM.
     Route: 048
     Dates: start: 20081231
  2. COUMADIN [Concomitant]
     Dosage: TAKEN DAILY, DOSE REPORTED AS: VARIED.
     Route: 048
  3. ATENOLOL [Concomitant]
     Route: 048
  4. DIGOXIN [Concomitant]
     Route: 048
  5. FERROUS SULFATE TAB [Concomitant]
     Route: 048
  6. KLOR-CON [Concomitant]
     Dosage: TAKEN DAILY.
     Route: 048
  7. CRESTOR [Concomitant]
     Route: 048

REACTIONS (4)
  - DEHYDRATION [None]
  - DIARRHOEA [None]
  - VENTRICULAR FIBRILLATION [None]
  - VOMITING [None]
